FAERS Safety Report 7038289-5 (Version None)
Quarter: 2010Q4

REPORT INFORMATION
  Report Type: 
  Country: None (occurrence: None)
  Receive Date: 20101011
  Receipt Date: 20091014
  Transmission Date: 20110411
  Serious: No
  Sender: FDA-Public Use
  Company Number: US-PFIZER INC-2009283840

PATIENT

DRUGS (1)
  1. NEURONTIN [Suspect]
     Indication: NEURALGIA
     Dosage: UNK

REACTIONS (3)
  - THINKING ABNORMAL [None]
  - VERTIGO [None]
  - VISUAL IMPAIRMENT [None]
